FAERS Safety Report 15422756 (Version 3)
Quarter: 2018Q4

REPORT INFORMATION
  Report Type: Spontaneous
  Country: BE (occurrence: BE)
  Receive Date: 20180925
  Receipt Date: 20181009
  Transmission Date: 20190204
  Serious: Yes (Hospitalization, Other)
  Sender: FDA-Public Use
  Company Number: BE-AUROBINDO-AUR-APL-2018-047009

PATIENT
  Age: 69 Year
  Sex: Female

DRUGS (2)
  1. FOSFOMYCIN [Suspect]
     Active Substance: FOSFOMYCIN
     Indication: ANTIBIOTIC THERAPY
     Dosage: 3 GRAM, WEEK
     Route: 065
  2. PARACETAMOL [Suspect]
     Active Substance: ACETAMINOPHEN
     Indication: PRODUCT USED FOR UNKNOWN INDICATION
     Dosage: 4 GRAM, DAILY
     Route: 065

REACTIONS (8)
  - Depressed level of consciousness [Unknown]
  - Pallor [Unknown]
  - Vomiting [Unknown]
  - Diarrhoea [Unknown]
  - Hyperventilation [Unknown]
  - Metabolic acidosis [Recovered/Resolved]
  - Hemiparesis [Unknown]
  - Wheezing [Unknown]
